FAERS Safety Report 7218437-4 (Version None)
Quarter: 2011Q1

REPORT INFORMATION
  Report Type: 
  Country: None (occurrence: None)
  Receive Date: 20110110
  Receipt Date: 20101230
  Transmission Date: 20110831
  Serious: Yes (Hospitalization)
  Sender: FDA-Public Use
  Company Number: PHHY2010FR89892

PATIENT
  Sex: Female

DRUGS (3)
  1. CERTICAN [Suspect]
     Indication: KAPOSI'S SARCOMA
     Dosage: 1.5 MG, UNK
     Route: 048
     Dates: start: 20100903
  2. CERTICAN [Suspect]
     Dosage: 2.25 MG, UNK
  3. COLCHICINE [Concomitant]
     Dosage: UNK

REACTIONS (3)
  - PERICARDITIS [None]
  - CHEST PAIN [None]
  - PERICARDIAL EFFUSION [None]
